FAERS Safety Report 7564928-6 (Version None)
Quarter: 2011Q2

REPORT INFORMATION
  Report Type: 
  Country: None (occurrence: None)
  Receive Date: 20110622
  Receipt Date: 20110218
  Transmission Date: 20111010
  Serious: Yes (Other)
  Sender: FDA-Public Use
  Company Number: US-MYLANLABS-2011S1003644

PATIENT
  Age: 46 Year
  Sex: Female

DRUGS (6)
  1. CLOZAPINE [Suspect]
     Route: 048
     Dates: end: 20110214
  2. TAMSULOSIN HCL [Concomitant]
     Route: 048
  3. ONDANSETRON [Concomitant]
     Route: 048
  4. BETHANECHOL [Concomitant]
     Route: 048
  5. PRILOSEC [Concomitant]
     Route: 048
  6. CHEMOTHERAPEUTICS [Suspect]
     Indication: NEOPLASM MALIGNANT
     Route: 042

REACTIONS (2)
  - GRANULOCYTOPENIA [None]
  - LEUKOPENIA [None]
